FAERS Safety Report 20417963 (Version 1)
Quarter: 2022Q1

REPORT INFORMATION
  Report Type: Spontaneous
  Country: US (occurrence: US)
  Receive Date: 20220202
  Receipt Date: 20220202
  Transmission Date: 20220424
  Serious: Yes (Other)
  Sender: FDA-Public Use
  Company Number: US-SUNOVION-2022SUN000308

PATIENT
  Age: 33 Year
  Sex: Male

DRUGS (1)
  1. APTIOM [Suspect]
     Active Substance: ESLICARBAZEPINE ACETATE
     Dosage: 800 MG, BID
     Route: 048

REACTIONS (5)
  - Epilepsy [Unknown]
  - Surgery [Unknown]
  - Road traffic accident [Unknown]
  - Anxiety [Unknown]
  - Inappropriate schedule of product administration [Unknown]
